FAERS Safety Report 10489996 (Version 3)
Quarter: 2014Q4

REPORT INFORMATION
  Report Type: Spontaneous
  Country: GB (occurrence: GB)
  Receive Date: 20141002
  Receipt Date: 20141015
  Transmission Date: 20150528
  Serious: Yes (Other)
  Sender: FDA-Public Use
  Company Number: GB-BAYER-2014-111860

PATIENT
  Age: 72 Year
  Sex: Male
  Weight: 67 kg

DRUGS (7)
  1. MORPHINE SULPHATE [Concomitant]
     Active Substance: MORPHINE SULFATE
     Indication: ILL-DEFINED DISORDER
  2. TRIPTORELIN [Concomitant]
     Active Substance: TRIPTORELIN
     Indication: ILL-DEFINED DISORDER
  3. DEXAMETHASON [DEXAMETHASONE] [Concomitant]
     Indication: ILL-DEFINED DISORDER
     Dosage: DAILY DOSE 5 MG
     Route: 048
  4. IBUPROFEN. [Concomitant]
     Active Substance: IBUPROFEN
     Indication: ILL-DEFINED DISORDER
  5. XOFIGO [Suspect]
     Active Substance: RADIUM RA-223 DICHLORIDE
     Indication: PROSTATE CANCER METASTATIC
     Dosage: 3.35 MBQ
     Route: 042
     Dates: start: 20140520, end: 20140520
  6. CASODEX [Concomitant]
     Active Substance: BICALUTAMIDE
     Indication: ILL-DEFINED DISORDER
     Dosage: DAILY DOSE 50 MG
     Route: 048
  7. PARACETAMOL [Concomitant]
     Active Substance: ACETAMINOPHEN
     Indication: ILL-DEFINED DISORDER

REACTIONS (3)
  - Scrotal oedema [Not Recovered/Not Resolved]
  - Oedema peripheral [Recovering/Resolving]
  - Peripheral swelling [Recovering/Resolving]

NARRATIVE: CASE EVENT DATE: 20140520
